FAERS Safety Report 7914499-7 (Version None)
Quarter: 2011Q4

REPORT INFORMATION
  Report Type: 
  Country: None (occurrence: None)
  Receive Date: 20111115
  Receipt Date: 20111107
  Transmission Date: 20120403
  Serious: Yes (Other)
  Sender: FDA-Public Use
  Company Number: DE-JNJFOC-20111102947

PATIENT

DRUGS (10)
  1. CLOZAPINE [Suspect]
     Indication: FOETAL EXPOSURE DURING PREGNANCY
     Route: 064
     Dates: start: 20110808, end: 20110812
  2. CLOZAPINE [Suspect]
     Route: 064
     Dates: start: 20110805, end: 20110807
  3. HALDOL [Suspect]
     Route: 064
     Dates: start: 20110730, end: 20110801
  4. HALDOL [Suspect]
     Route: 064
     Dates: start: 20110808
  5. CLOZAPINE [Suspect]
     Route: 064
     Dates: start: 20110730, end: 20110801
  6. CLOZAPINE [Suspect]
     Route: 064
     Dates: start: 20110813
  7. HALDOL [Suspect]
     Route: 064
     Dates: start: 20110723, end: 20110729
  8. HALDOL [Suspect]
     Route: 064
     Dates: start: 20110720, end: 20110722
  9. HALDOL [Suspect]
     Indication: FOETAL EXPOSURE DURING PREGNANCY
     Route: 064
     Dates: start: 20110802, end: 20110807
  10. CLOZAPINE [Suspect]
     Route: 064
     Dates: start: 20110802, end: 20110804

REACTIONS (2)
  - FOETAL EXPOSURE DURING PREGNANCY [None]
  - FOETAL GROWTH RESTRICTION [None]
